FAERS Safety Report 25841206 (Version 1)
Quarter: 2025Q3

REPORT INFORMATION
  Report Type: Spontaneous
  Country: US (occurrence: US)
  Receive Date: 20250924
  Receipt Date: 20250924
  Transmission Date: 20251020
  Serious: Yes (Other)
  Sender: RECKITT BENCKISER
  Company Number: US-PROD-AS2-212756134-RB-135518-2023

PATIENT
  Sex: Female

DRUGS (1)
  1. MUCINEX CHILDRENS NIGHT TIME MULTI-SYMPTOM COLD [Suspect]
     Active Substance: ACETAMINOPHEN\DIPHENHYDRAMINE HYDROCHLORIDE\PHENYLEPHRINE HYDROCHLORIDE
     Indication: Nasopharyngitis
     Route: 065

REACTIONS (2)
  - Pneumonia [Unknown]
  - Drug ineffective [Not Recovered/Not Resolved]
